FAERS Safety Report 24468253 (Version 1)
Quarter: 2024Q4

REPORT INFORMATION
  Report Type: Spontaneous
  Country: FR (occurrence: FR)
  Receive Date: 20241018
  Receipt Date: 20241018
  Transmission Date: 20250114
  Serious: Yes (Hospitalization, Other)
  Sender: RANBAXY
  Company Number: FR-AFSSAPS-AVNT2024000648

PATIENT
  Age: 24 Year
  Sex: Male

DRUGS (5)
  1. MORPHINE [Suspect]
     Active Substance: MORPHINE
     Indication: Product used for unknown indication
     Dosage: 50 MG/JOUR
     Route: 030
     Dates: start: 2018
  2. ZOLPIDEM [Suspect]
     Active Substance: ZOLPIDEM TARTRATE
     Indication: Product used for unknown indication
     Dosage: 5 COMPRIMES / JOUR
     Route: 048
     Dates: start: 202301
  3. XANAX [Suspect]
     Active Substance: ALPRAZOLAM
     Indication: Product used for unknown indication
     Dosage: 30
     Route: 048
     Dates: start: 202403
  4. TRAMADOL [Suspect]
     Active Substance: TRAMADOL
     Indication: Product used for unknown indication
     Dosage: 750 MG/JOUR, 1500 MG PER EPISODE
     Route: 048
     Dates: start: 202111
  5. KETAMINE [Suspect]
     Active Substance: KETAMINE
     Indication: Product used for unknown indication
     Dosage: 400 MG/DAY
     Route: 065
     Dates: start: 202401

REACTIONS (4)
  - Withdrawal syndrome [Recovered/Resolved]
  - Dissociative disorder [Recovered/Resolved]
  - Drug dependence [Not Recovered/Not Resolved]
  - Toxicity to various agents [Recovered/Resolved]

NARRATIVE: CASE EVENT DATE: 20240727
